FAERS Safety Report 17711763 (Version 1)
Quarter: 2020Q2

REPORT INFORMATION
  Report Type: Spontaneous
  Country: US (occurrence: US)
  Receive Date: 20200426
  Receipt Date: 20200426
  Transmission Date: 20200714
  Serious: Yes (Disabling)
  Sender: FDA-Public Use
  Company Number: None

PATIENT
  Age: 28 Year
  Sex: Male
  Weight: 67.5 kg

DRUGS (1)
  1. LEVOFLOXACIN. [Suspect]
     Active Substance: LEVOFLOXACIN
     Indication: EAR INFECTION
     Dates: start: 20191011, end: 20191012

REACTIONS (12)
  - Burning sensation [None]
  - Visual impairment [None]
  - Myalgia [None]
  - Neuropathy peripheral [None]
  - Anxiety [None]
  - Tendon disorder [None]
  - Injury [None]
  - Muscle disorder [None]
  - Nervous system disorder [None]
  - Feeling abnormal [None]
  - Insomnia [None]
  - Tendon pain [None]

NARRATIVE: CASE EVENT DATE: 20191011
